FAERS Safety Report 14772215 (Version 4)
Quarter: 2018Q4

REPORT INFORMATION
  Report Type: Spontaneous
  Country: PL (occurrence: PL)
  Receive Date: 20180418
  Receipt Date: 20181217
  Transmission Date: 20190204
  Serious: Yes (Other)
  Sender: FDA-Public Use
  Company Number: PL-ALVOGEN-2018-ALVOGEN-095785

PATIENT
  Age: 57 Year
  Sex: Male
  Weight: 86 kg

DRUGS (15)
  1. FLUOXETINE [Suspect]
     Active Substance: FLUOXETINE HYDROCHLORIDE
     Indication: FIBROMYALGIA
     Dosage: 2 X 20MG AT THE MORNING AND EVENING (80 MG,1 D) FOR 40 DAYS
     Route: 048
  2. PARACETAMOL [Concomitant]
     Active Substance: ACETAMINOPHEN
     Indication: PRODUCT USED FOR UNKNOWN INDICATION
  3. DIAZEPAM. [Suspect]
     Active Substance: DIAZEPAM
     Indication: NIGHTMARE
  4. SIMVASTATIN. [Concomitant]
     Active Substance: SIMVASTATIN
     Indication: PRODUCT USED FOR UNKNOWN INDICATION
  5. DULOXETINE. [Concomitant]
     Active Substance: DULOXETINE
     Indication: PRODUCT USED FOR UNKNOWN INDICATION
     Dosage: STRENGTH:120 MG
  6. ZOLPIDEM [Suspect]
     Active Substance: ZOLPIDEM\ZOLPIDEM TARTRATE
     Indication: SLEEP DISORDER
     Dosage: 1 X 10 MG; AT BED TIME (10 MG)
     Route: 048
     Dates: start: 20171122, end: 20171124
  7. MIANSERIN [Suspect]
     Active Substance: MIANSERIN
     Indication: INSOMNIA
     Dosage: HALF AN HOUR BEFORE BEDTIME (20 MG,1 D)
  8. METFORMIN [Concomitant]
     Active Substance: METFORMIN HYDROCHLORIDE
     Indication: INSOMNIA
  9. FLUOXETINE [Suspect]
     Active Substance: FLUOXETINE HYDROCHLORIDE
     Indication: OFF LABEL USE
     Dosage: 2 X 20MG TWICE A DAY
     Route: 048
     Dates: start: 20171103, end: 20171122
  10. ZOFENIL [Concomitant]
     Active Substance: ZOFENOPRIL
     Indication: PRODUCT USED FOR UNKNOWN INDICATION
  11. ZOLPIDEM [Suspect]
     Active Substance: ZOLPIDEM\ZOLPIDEM TARTRATE
     Indication: INSOMNIA
     Dosage: 1 X 10 MG; AT BED TIME (10 MG) FOR 10 DAYS
     Route: 048
  12. MIANSERIN [Suspect]
     Active Substance: MIANSERIN
     Indication: NIGHTMARE
     Dosage: HALF AN HOUR BEFORE BEDTIME (20 MG,1 D) FOR 20 DAYS.
  13. DIAZEPAM. [Suspect]
     Active Substance: DIAZEPAM
     Indication: INITIAL INSOMNIA
  14. BISOCARD [Concomitant]
     Active Substance: BISOPROLOL
     Indication: PRODUCT USED FOR UNKNOWN INDICATION
  15. METFORMIN [Concomitant]
     Active Substance: METFORMIN HYDROCHLORIDE
     Indication: TYPE 2 DIABETES MELLITUS

REACTIONS (10)
  - Dry mouth [Recovering/Resolving]
  - Drug ineffective [Recovering/Resolving]
  - Blood glucose fluctuation [Recovering/Resolving]
  - Drug interaction [Unknown]
  - Poor quality sleep [Recovered/Resolved]
  - Off label use [Recovered/Resolved]
  - Abnormal dreams [Recovered/Resolved]
  - Impaired self-care [Unknown]
  - Somnolence [Recovering/Resolving]
  - Initial insomnia [Recovered/Resolved]
